FAERS Safety Report 16174202 (Version 1)
Quarter: 2019Q2

REPORT INFORMATION
  Report Type: Spontaneous
  Country: US (occurrence: US)
  Receive Date: 20190408
  Receipt Date: 20190408
  Transmission Date: 20190711
  Serious: Yes (Life-Threatening, Hospitalization, Disabling)
  Sender: FDA-Public Use
  Company Number: None

PATIENT
  Age: 78 Year
  Sex: Female
  Weight: 68.4 kg

DRUGS (5)
  1. DOXYCYCLINE HYCLATE. [Suspect]
     Active Substance: DOXYCYCLINE HYCLATE
     Indication: LOCALISED INFECTION
     Dosage: ?          QUANTITY:1 CAPSULE(S);?
     Route: 048
     Dates: start: 20190318, end: 20190328
  2. PROAIR HFA [Concomitant]
     Active Substance: ALBUTEROL SULFATE
  3. REPATHA [Concomitant]
     Active Substance: EVOLOCUMAB
  4. ENALAPRIL [Concomitant]
     Active Substance: ENALAPRIL
  5. CALCIUM [Concomitant]
     Active Substance: CALCIUM

REACTIONS (5)
  - Nausea [None]
  - Vomiting [None]
  - Rectal haemorrhage [None]
  - Large intestine infection [None]
  - Abdominal pain upper [None]

NARRATIVE: CASE EVENT DATE: 20190328
